FAERS Safety Report 12966049 (Version 1)
Quarter: 2016Q4

REPORT INFORMATION
  Report Type: Spontaneous
  Country: US (occurrence: US)
  Receive Date: 20161122
  Receipt Date: 20161122
  Transmission Date: 20170207
  Serious: Yes (Hospitalization)
  Sender: FDA-Public Use
  Company Number: US-PFIZER INC-2016447645

PATIENT
  Age: 22 Year
  Sex: Male
  Weight: 98 kg

DRUGS (2)
  1. XYNTHA [Suspect]
     Active Substance: ANTIHEMOPHILIC FACTOR, HUMAN RECOMBINANT RESIDUES 743-1636 DELETED
     Indication: HAEMOPHILIA
     Dosage: 2500 IU, AS NEEDED (2000+500 IU; MONTHLY DOSAGE: 20,000IU)
  2. MECLOMEN [Concomitant]
     Active Substance: MECLOFENAMATE SODIUM
     Dosage: 100 MG, UNK

REACTIONS (1)
  - Haemarthrosis [Unknown]
